FAERS Safety Report 6327942-4 (Version None)
Quarter: 2009Q3

REPORT INFORMATION
  Report Type: 
  Country: None (occurrence: None)
  Receive Date: 20090825
  Receipt Date: 20080812
  Transmission Date: 20100115
  Serious: No
  Sender: FDA-Public Use
  Company Number: US-ABBOTT-08P-163-0469980-00

PATIENT
  Age: 42 Year
  Sex: Female

DRUGS (10)
  1. SYNTHROID [Suspect]
     Indication: HORMONE REPLACEMENT THERAPY
     Route: 048
     Dates: start: 20030101
  2. SYNTHROID [Suspect]
     Route: 048
  3. SYNTHROID [Suspect]
     Route: 048
  4. SYNTHROID [Suspect]
     Route: 048
     Dates: end: 20080801
  5. CLOOPIN [Concomitant]
     Indication: DRUG USE FOR UNKNOWN INDICATION
  6. REMARON [Concomitant]
     Indication: DRUG USE FOR UNKNOWN INDICATION
  7. OXCARBAZEPINE [Concomitant]
     Indication: DRUG USE FOR UNKNOWN INDICATION
  8. DULOXETINE HYDROCHLORIDE [Concomitant]
     Indication: DRUG USE FOR UNKNOWN INDICATION
  9. FENOFIBRATE [Concomitant]
     Indication: DRUG USE FOR UNKNOWN INDICATION
  10. TIZANIDINE HYDROCHLORIDE [Concomitant]
     Indication: DRUG USE FOR UNKNOWN INDICATION

REACTIONS (2)
  - HEADACHE [None]
  - WHITE BLOOD CELL COUNT INCREASED [None]
